FAERS Safety Report 7733789-4 (Version None)
Quarter: 2011Q3

REPORT INFORMATION
  Report Type: 
  Country: None (occurrence: None)
  Receive Date: 20110902
  Receipt Date: 20110902
  Transmission Date: 20111222
  Serious: Yes (Other)
  Sender: FDA-Public Use
  Company Number: None

PATIENT
  Age: 39 Year
  Sex: Female
  Weight: 68.0396 kg

DRUGS (1)
  1. RISPERIDONE [Suspect]
     Indication: RESTLESS LEGS SYNDROME
     Dosage: 1X DAILY ORAL
     Route: 048
     Dates: start: 20070901

REACTIONS (3)
  - TIC [None]
  - FATIGUE [None]
  - ALCOHOL USE [None]
